FAERS Safety Report 7704345-9 (Version None)
Quarter: 2011Q3

REPORT INFORMATION
  Report Type: 
  Country: None (occurrence: None)
  Receive Date: 20110823
  Receipt Date: 20110812
  Transmission Date: 20111222
  Serious: Yes (Hospitalization)
  Sender: FDA-Public Use
  Company Number: IT-BAYER-2011-052051

PATIENT
  Age: 70 Year
  Sex: Female
  Weight: 57 kg

DRUGS (5)
  1. SORAFENIB (RAF KINASE INHIBITOR) [Suspect]
     Dosage: 400 MG, BID
     Route: 048
     Dates: start: 20100901, end: 20110613
  2. SORAFENIB (RAF KINASE INHIBITOR) [Suspect]
     Indication: HEPATIC NEOPLASM MALIGNANT
     Dosage: 400 MG, BID
     Route: 048
     Dates: start: 20100112, end: 20110720
  3. ADDITIONAL STUDY MEDICATION [Suspect]
     Indication: HEPATIC NEOPLASM MALIGNANT
     Dosage: UNK
  4. SORAFENIB (RAF KINASE INHIBITOR) [Suspect]
     Dosage: 400 MG, BID
     Route: 048
     Dates: start: 20100724, end: 20100902
  5. BARACLUDE [Concomitant]
     Indication: HEPATITIS B
     Dosage: 0.5 MG
     Route: 048
     Dates: start: 20100110

REACTIONS (2)
  - JAUNDICE [None]
  - ASCITES [None]
